FAERS Safety Report 7801588-0 (Version None)
Quarter: 2011Q4

REPORT INFORMATION
  Report Type: 
  Country: None (occurrence: None)
  Receive Date: 20111006
  Receipt Date: 20111006
  Transmission Date: 20120403
  Serious: Yes (Hospitalization)
  Sender: FDA-Public Use
  Company Number: None

PATIENT
  Age: 89 Year
  Sex: Female
  Weight: 55 kg

DRUGS (17)
  1. COUMADIN [Suspect]
     Indication: ATRIAL FIBRILLATION
     Dosage: 4MG DAILY PO CHRONIC
  2. OYSTER SHELL CA [Concomitant]
  3. VIT D3 [Concomitant]
  4. NORVASC [Concomitant]
  5. COZAAR [Concomitant]
  6. POLYETHYLENE [Concomitant]
  7. ZANTAC [Concomitant]
  8. METOPROLOL TARTRATE BLEND [Concomitant]
  9. VICODIN [Concomitant]
  10. ESTERASE [Concomitant]
  11. COLACE [Concomitant]
  12. HYDROCHLOROTHIAZIDE [Concomitant]
  13. CITALOPRAM [Concomitant]
  14. ZANTAC [Concomitant]
  15. SENOKOT [Concomitant]
  16. FOLIC ACID [Concomitant]
  17. PREDNISOLONE ACETATE [Concomitant]

REACTIONS (3)
  - FALL [None]
  - BRAIN CONTUSION [None]
  - CEREBRAL HAEMORRHAGE [None]
